FAERS Safety Report 8139785-X (Version None)
Quarter: 2012Q1

REPORT INFORMATION
  Report Type: 
  Country: None (occurrence: None)
  Receive Date: 20120215
  Receipt Date: 20120206
  Transmission Date: 20120608
  Serious: Yes (Hospitalization)
  Sender: FDA-Public Use
  Company Number: FR-ASTRAZENECA-2012SE09205

PATIENT
  Age: 66 Year
  Sex: Male

DRUGS (8)
  1. SYMBICORT [Suspect]
     Dosage: 160/4.5 UG PER DOSE, TWO INHALATIONS PER DAY
     Route: 055
  2. LEVOTHYROXINE SODIUM [Suspect]
     Route: 048
  3. IRBESARTAN [Suspect]
     Route: 048
  4. REPAGLINIDE [Suspect]
     Route: 048
  5. EZETIMIBE [Suspect]
     Route: 048
  6. PREVISCAN [Suspect]
     Route: 048
  7. INDAPAMIDE [Suspect]
     Route: 048
  8. VERAPAMIL [Suspect]
     Route: 048

REACTIONS (1)
  - EOSINOPHILIA [None]
